FAERS Safety Report 5404810-3 (Version None)
Quarter: 2007Q3

REPORT INFORMATION
  Report Type: 
  Country: None (occurrence: None)
  Receive Date: 20070803
  Receipt Date: 20070723
  Transmission Date: 20080115
  Serious: Yes (Other)
  Sender: FDA-Public Use
  Company Number: CA-JNJFOC-20070600760

PATIENT
  Sex: Female

DRUGS (6)
  1. REMICADE [Suspect]
     Indication: ANKYLOSING SPONDYLITIS
     Route: 042
  2. PANTALOC [Concomitant]
  3. INDOCIN [Concomitant]
  4. TYLENOL #3 [Concomitant]
  5. FOLIC ACID [Concomitant]
  6. SALAZOPYRIN [Concomitant]

REACTIONS (1)
  - RAYNAUD'S PHENOMENON [None]
